FAERS Safety Report 17431476 (Version 1)
Quarter: 2020Q1

REPORT INFORMATION
  Report Type: Report from Study
  Country: CO (occurrence: CO)
  Receive Date: 20200218
  Receipt Date: 20200218
  Transmission Date: 20200409
  Serious: Yes (Hospitalization)
  Sender: FDA-Public Use
  Company Number: CO-ROCHE-2426308

PATIENT
  Sex: Female

DRUGS (2)
  1. CELLCEPT [Suspect]
     Active Substance: MYCOPHENOLATE MOFETIL\MYCOPHENOLATE MOFETIL HYDROCHLORIDE
     Indication: TRANSPLANT
     Dosage: 2 PILLS IN THE MORNING AND 2 PILLS AT NIGHT
     Route: 065
  2. VALIXA [Suspect]
     Active Substance: VALGANCICLOVIR
     Indication: TRANSPLANT
     Dosage: 2 PILLS PER DAY
     Route: 048

REACTIONS (3)
  - Cyst [Unknown]
  - Urinary tract infection [Unknown]
  - Immunodeficiency [Unknown]
